FAERS Safety Report 16714778 (Version 1)
Quarter: 2019Q3

REPORT INFORMATION
  Report Type: Spontaneous
  Country: FR (occurrence: FR)
  Receive Date: 20190819
  Receipt Date: 20190819
  Transmission Date: 20191004
  Serious: Yes (Other)
  Sender: FDA-Public Use
  Company Number: PHHY2019FR187994

PATIENT
  Age: 57 Year
  Sex: Female
  Weight: 57.9 kg

DRUGS (4)
  1. LEVOFOLINATE CALCIUM [Suspect]
     Active Substance: LEVOLEUCOVORIN CALCIUM
     Indication: PANCREATIC CARCINOMA
     Dosage: 350 MG, UNK (TOTAL)
     Route: 042
     Dates: start: 20190625, end: 20190625
  2. SOLU-MEDROL [Concomitant]
     Active Substance: METHYLPREDNISOLONE SODIUM SUCCINATE
     Indication: PREMEDICATION
     Dosage: 120 MG, TOTAL
     Route: 042
     Dates: start: 20190625, end: 20190625
  3. ZOPHREN [Suspect]
     Active Substance: ONDANSETRON
     Indication: PREMEDICATION
     Dosage: 1 DF, UNK (TOTAL)
     Route: 042
     Dates: start: 20190625, end: 20190625
  4. OXALIPLATINE KABI [Suspect]
     Active Substance: OXALIPLATIN
     Indication: PANCREATIC CARCINOMA
     Dosage: 95 MG, UNK (TOTAL)
     Route: 042
     Dates: start: 20190625, end: 20190625

REACTIONS (5)
  - Erythema [Recovered/Resolved]
  - Paraesthesia [Recovered/Resolved]
  - Hypertension [Recovered/Resolved]
  - Dyspnoea [Recovered/Resolved]
  - Hypersensitivity [Recovered/Resolved]

NARRATIVE: CASE EVENT DATE: 20190625
